FAERS Safety Report 20889212 (Version 1)
Quarter: 2022Q2

REPORT INFORMATION
  Report Type: Spontaneous
  Country: US (occurrence: US)
  Receive Date: 20220530
  Receipt Date: 20220530
  Transmission Date: 20220721
  Serious: No
  Sender: FDA-Public Use
  Company Number: US-BAUSCH-BL-2022-012205

PATIENT
  Age: 54 Year
  Sex: Female

DRUGS (4)
  1. TRETINOIN [Suspect]
     Active Substance: TRETINOIN
     Indication: Skin wrinkling
     Route: 061
     Dates: start: 20220510, end: 20220515
  2. TRETINOIN [Suspect]
     Active Substance: TRETINOIN
     Indication: Product use in unapproved indication
  3. HYDROQUINONE [Suspect]
     Active Substance: HYDROQUINONE
     Indication: Skin wrinkling
     Dosage: AS DIRECTED
     Route: 061
     Dates: start: 20220510, end: 20220515
  4. BOTOX [Concomitant]
     Active Substance: ONABOTULINUMTOXINA
     Indication: Product used for unknown indication
     Route: 030
     Dates: start: 20220510, end: 20220510

REACTIONS (10)
  - Application site rash [Recovering/Resolving]
  - Eye swelling [Recovering/Resolving]
  - Application site pain [Recovering/Resolving]
  - Skin tightness [Recovering/Resolving]
  - Skin exfoliation [Recovering/Resolving]
  - Application site discomfort [Recovering/Resolving]
  - Application site swelling [Recovering/Resolving]
  - Application site vesicles [Recovering/Resolving]
  - Application site erythema [Recovering/Resolving]
  - Product use in unapproved indication [Unknown]

NARRATIVE: CASE EVENT DATE: 20220510
